FAERS Safety Report 7012336-9 (Version None)
Quarter: 2010Q3

REPORT INFORMATION
  Report Type: 
  Country: None (occurrence: None)
  Receive Date: 20100924
  Receipt Date: 20100921
  Transmission Date: 20110219
  Serious: Yes (Other)
  Sender: FDA-Public Use
  Company Number: AR-JNJFOC-20060805469

PATIENT
  Sex: Female
  Weight: 60 kg

DRUGS (3)
  1. IBUPIRAC 400 MG [Suspect]
     Indication: PYREXIA
     Route: 048
  2. IBUPIRAC 400 MG [Suspect]
     Indication: INFLUENZA
     Route: 048
  3. LEVOTHYROXINE SODIUM [Concomitant]
     Indication: HYPOTHYROIDISM
     Dosage: 112 MICROGRAMS

REACTIONS (5)
  - ABDOMINAL PAIN [None]
  - DIARRHOEA [None]
  - FALL [None]
  - LIVER DISORDER [None]
  - LOSS OF CONSCIOUSNESS [None]
